FAERS Safety Report 5674214-7 (Version None)
Quarter: 2008Q1

REPORT INFORMATION
  Report Type: 
  Country: None (occurrence: None)
  Receive Date: 20080320
  Receipt Date: 20080312
  Transmission Date: 20080703
  Serious: Yes (Death, Hospitalization, Other)
  Sender: FDA-Public Use
  Company Number: BR-ASTRAZENECA-2007UW24972

PATIENT
  Age: 75 Year
  Sex: Female

DRUGS (3)
  1. ARIMIDEX [Suspect]
     Indication: BREAST CANCER
     Route: 048
     Dates: start: 20040101, end: 20070101
  2. MEDICATION FOR HYPERTENSION [Concomitant]
     Indication: HYPERTENSION
  3. MEDICATION FOR HYPERCHOLESTEROLEMIA [Concomitant]
     Indication: HYPERCHOLESTEROLAEMIA

REACTIONS (3)
  - ABDOMINAL PAIN [None]
  - INFECTION [None]
  - THROMBOSIS [None]
